FAERS Safety Report 15621208 (Version 5)
Quarter: 2019Q1

REPORT INFORMATION
  Report Type: Report from Study
  Country: BR (occurrence: BR)
  Receive Date: 20181115
  Receipt Date: 20190117
  Transmission Date: 20190417
  Serious: Yes (Hospitalization)
  Sender: FDA-Public Use
  Company Number: PHHY2018BR124521

PATIENT
  Age: 53 Year
  Sex: Female
  Weight: 64 kg

DRUGS (4)
  1. COSENTYX [Suspect]
     Active Substance: SECUKINUMAB
     Dosage: 150 MG, QMO
     Route: 058
     Dates: start: 20181007
  2. COSENTYX [Suspect]
     Active Substance: SECUKINUMAB
     Dosage: 150 MG, QMO
     Route: 058
     Dates: start: 20181226
  3. COSENTYX [Suspect]
     Active Substance: SECUKINUMAB
     Dosage: 150 MG, QMO
     Route: 058
     Dates: start: 20181113
  4. COSENTYX [Suspect]
     Active Substance: SECUKINUMAB
     Indication: PSORIATIC ARTHROPATHY
     Dosage: 150 MG, QW (ONE APPLICATION PER WEEK DURING 5 WEEKS)
     Route: 058
     Dates: start: 20180906

REACTIONS (30)
  - Costochondritis [Recovering/Resolving]
  - Oesophagitis [Recovering/Resolving]
  - Bursitis [Not Recovered/Not Resolved]
  - Back pain [Recovering/Resolving]
  - Gastritis [Not Recovered/Not Resolved]
  - Gait disturbance [Not Recovered/Not Resolved]
  - Dysphagia [Unknown]
  - Glossodynia [Recovered/Resolved]
  - Dry mouth [Recovered/Resolved]
  - Stomatitis [Recovering/Resolving]
  - Feeding disorder [Unknown]
  - Swollen tongue [Recovered/Resolved]
  - Vomiting [Recovering/Resolving]
  - Pain in extremity [Recovering/Resolving]
  - Groin pain [Not Recovered/Not Resolved]
  - Inflammation [Not Recovered/Not Resolved]
  - Myositis [Not Recovered/Not Resolved]
  - Oesophageal irritation [Unknown]
  - Gingival swelling [Unknown]
  - Arthralgia [Recovering/Resolving]
  - Influenza [Recovering/Resolving]
  - Musculoskeletal chest pain [Not Recovered/Not Resolved]
  - Lung disorder [Not Recovered/Not Resolved]
  - Tooth infection [Recovering/Resolving]
  - Paraesthesia [Recovered/Resolved]
  - Drug effect incomplete [Not Recovered/Not Resolved]
  - Hiatus hernia [Not Recovered/Not Resolved]
  - Pyrexia [Recovering/Resolving]
  - Oral infection [Recovering/Resolving]
  - Gingival blister [Recovering/Resolving]

NARRATIVE: CASE EVENT DATE: 201809
